FAERS Safety Report 11069431 (Version 1)
Quarter: 2015Q2

REPORT INFORMATION
  Report Type: Spontaneous
  Country: FR (occurrence: FR)
  Receive Date: 20150427
  Receipt Date: 20150427
  Transmission Date: 20150821
  Serious: Yes (Hospitalization)
  Sender: FDA-Public Use
  Company Number: FR-009507513-1504FRA020943

PATIENT
  Age: 88 Year
  Sex: Male

DRUGS (7)
  1. CORDARONE [Suspect]
     Active Substance: AMIODARONE HYDROCHLORIDE
     Dosage: 200 MG, QD
     Route: 048
     Dates: end: 20140825
  2. CANCIDAS [Suspect]
     Active Substance: CASPOFUNGIN ACETATE
     Indication: CANDIDA INFECTION
  3. XATRAL [Suspect]
     Active Substance: ALFUZOSIN
     Dosage: 10 MG, UNK
     Route: 048
     Dates: start: 20140729, end: 20140820
  4. CANCIDAS [Suspect]
     Active Substance: CASPOFUNGIN ACETATE
     Indication: STAPHYLOCOCCAL INFECTION
     Dosage: 70 MG, UNK
     Route: 048
     Dates: start: 20140807, end: 20140820
  5. FUCIDINE [Suspect]
     Active Substance: FUSIDIC ACID
     Indication: STAPHYLOCOCCAL INFECTION
     Dosage: 2-6 TABLETS DAILY
     Route: 048
     Dates: start: 20140807, end: 20140819
  6. LASILIX [Suspect]
     Active Substance: FUROSEMIDE
     Dosage: 40-160 MG DAILY
     Dates: end: 20140821
  7. CUBICIN [Suspect]
     Active Substance: DAPTOMYCIN
     Indication: STAPHYLOCOCCAL INFECTION
     Dosage: 500 MG, UNK
     Route: 042
     Dates: start: 20140807, end: 20140824

REACTIONS (1)
  - Hepatocellular injury [Unknown]

NARRATIVE: CASE EVENT DATE: 20140802
